FAERS Safety Report 14096949 (Version 1)
Quarter: 2017Q4

REPORT INFORMATION
  Report Type: Spontaneous
  Country: US (occurrence: None)
  Receive Date: 20171016
  Receipt Date: 20171016
  Transmission Date: 20180321
  Serious: Yes (Hospitalization)
  Sender: FDA-Public Use
  Company Number: None

PATIENT
  Age: 78 Year
  Sex: Male

DRUGS (2)
  1. WARFARIN [Suspect]
     Active Substance: WARFARIN
     Indication: ATRIAL FIBRILLATION
     Dates: start: 20170127
  2. CLOPIDOGREL [Suspect]
     Active Substance: CLOPIDOGREL BISULFATE
     Indication: CORONARY ARTERIAL STENT INSERTION
     Route: 048
     Dates: start: 20170124

REACTIONS (10)
  - Dizziness [None]
  - Mallory-Weiss syndrome [None]
  - Blood pressure systolic decreased [None]
  - Barrett^s oesophagus [None]
  - Melaena [None]
  - Haemorrhage [None]
  - Haematemesis [None]
  - Anaemia [None]
  - Gastritis [None]
  - Peptic ulcer [None]

NARRATIVE: CASE EVENT DATE: 20170726
